FAERS Safety Report 17683896 (Version 1)
Quarter: 2020Q2

REPORT INFORMATION
  Report Type: Spontaneous
  Country: US (occurrence: US)
  Receive Date: 20200417
  Receipt Date: 20200417
  Transmission Date: 20200714
  Serious: No
  Sender: FDA-Public Use
  Company Number: None

PATIENT
  Sex: Female

DRUGS (1)
  1. CAPECITABINE 500MG NOVADOZ PHARMACEUTICALS [Suspect]
     Active Substance: CAPECITABINE
     Indication: RECTAL CANCER
     Dosage: FROM 7/2020 TO ON HOLD
     Route: 048
     Dates: start: 201907

REACTIONS (6)
  - Sleep disorder [None]
  - Pulse abnormal [None]
  - Pain [None]
  - Hypertension [None]
  - Headache [None]
  - Pain in extremity [None]
